FAERS Safety Report 6131266-8 (Version None)
Quarter: 2009Q1

REPORT INFORMATION
  Report Type: 
  Country: None (occurrence: None)
  Receive Date: 20090325
  Receipt Date: 20080212
  Transmission Date: 20090719
  Serious: Yes (Other)
  Sender: FDA-Public Use
  Company Number: US-BRISTOL-MYERS SQUIBB COMPANY-14074892

PATIENT

DRUGS (1)
  1. ERBITUX [Suspect]

REACTIONS (3)
  - ERYTHEMA [None]
  - HYPOTENSION [None]
  - INFUSION SITE SWELLING [None]
